FAERS Safety Report 6198204-3 (Version None)
Quarter: 2009Q2

REPORT INFORMATION
  Report Type: 
  Country: None (occurrence: None)
  Receive Date: 20090521
  Receipt Date: 20090514
  Transmission Date: 20091009
  Serious: Yes (Other)
  Sender: FDA-Public Use
  Company Number: ES-MERCK-0905ESP00036

PATIENT
  Age: 66 Year
  Sex: Female

DRUGS (1)
  1. SINGULAIR [Suspect]
     Indication: ASTHMA
     Route: 048
     Dates: start: 20090302

REACTIONS (3)
  - DYSPNOEA [None]
  - EYELID OEDEMA [None]
  - PHARYNGITIS [None]
